FAERS Safety Report 17792466 (Version 7)
Quarter: 2021Q1

REPORT INFORMATION
  Report Type: Spontaneous
  Country: US (occurrence: US)
  Receive Date: 20200515
  Receipt Date: 20210319
  Transmission Date: 20210419
  Serious: Yes (Other)
  Sender: FDA-Public Use
  Company Number: US-GLAXOSMITHKLINE-US2020AMR076993

PATIENT
  Sex: Female

DRUGS (6)
  1. ZEJULA [Suspect]
     Active Substance: NIRAPARIB
     Dosage: UNK
     Dates: start: 20170601
  2. ZEJULA [Suspect]
     Active Substance: NIRAPARIB
     Indication: OVARIAN CANCER
     Dosage: UNK
     Dates: start: 20170601
  3. ZEJULA [Suspect]
     Active Substance: NIRAPARIB
     Indication: BREAST CANCER
     Dosage: 300 MG
  4. ZEJULA [Suspect]
     Active Substance: NIRAPARIB
     Dosage: 200 MG, QD
  5. ZEJULA [Suspect]
     Active Substance: NIRAPARIB
     Dosage: ALTERNATING 200 MG ONE WEEK AND 100 MG NEXT WEEK
  6. ZEJULA [Suspect]
     Active Substance: NIRAPARIB
     Dosage: 100 MG, QD
     Route: 048

REACTIONS (24)
  - Anxiety [Unknown]
  - Palpitations [Unknown]
  - Condition aggravated [Recovered/Resolved]
  - Red blood cell count decreased [Recovered/Resolved]
  - Asthenia [Unknown]
  - Mastectomy [Unknown]
  - Headache [Unknown]
  - Product use in unapproved indication [Unknown]
  - Anaemia [Recovered/Resolved]
  - Decreased appetite [Unknown]
  - Photosensitivity reaction [Unknown]
  - Fatigue [Unknown]
  - Dyspnoea [Unknown]
  - Feeling guilty [Unknown]
  - Breast calcifications [Unknown]
  - Intraductal proliferative breast lesion [Unknown]
  - Feeling abnormal [Unknown]
  - Decreased activity [Unknown]
  - Cyst [Unknown]
  - Migraine [Unknown]
  - Liver function test abnormal [Unknown]
  - Loss of consciousness [Unknown]
  - Full blood count decreased [Unknown]
  - Depression [Unknown]
